FAERS Safety Report 23789274 (Version 2)
Quarter: 2024Q3

REPORT INFORMATION
  Report Type: Spontaneous
  Country: US (occurrence: US)
  Receive Date: 20240426
  Receipt Date: 20240729
  Transmission Date: 20241017
  Serious: Yes (Hospitalization, Other)
  Sender: BRISTOL MYERS SQUIBB
  Company Number: US-BRISTOL-MYERS SQUIBB COMPANY-2024-062117

PATIENT
  Sex: Female

DRUGS (4)
  1. NIVOLUMAB [Suspect]
     Active Substance: NIVOLUMAB
     Indication: Clear cell renal cell carcinoma
     Dates: start: 20240221
  2. IPILIMUMAB [Suspect]
     Active Substance: IPILIMUMAB
     Indication: Clear cell renal cell carcinoma
     Dates: start: 20240221
  3. PREDNISONE [Suspect]
     Active Substance: PREDNISONE
     Indication: Pneumonia
  4. PREDNISONE [Suspect]
     Active Substance: PREDNISONE

REACTIONS (6)
  - Malignant neoplasm progression [Unknown]
  - Immune-mediated lung disease [Recovered/Resolved]
  - Weight increased [Unknown]
  - Blood pressure increased [Recovering/Resolving]
  - Anxiety [Unknown]
  - Cushingoid [Unknown]

NARRATIVE: CASE EVENT DATE: 20240101
